FAERS Safety Report 4582813-9 (Version None)
Quarter: 2005Q1

REPORT INFORMATION
  Report Type: 
  Country: None (occurrence: None)
  Receive Date: 20050121
  Receipt Date: 20041108
  Transmission Date: 20050727
  Serious: Yes (Other)
  Sender: FDA-Public Use
  Company Number: 2004105769

PATIENT

DRUGS (2)
  1. RELPAX [Suspect]
     Indication: ILL-DEFINED DISORDER
  2. SUMATRIPTAN (SUMATRIPTAN) [Suspect]
     Indication: ILL-DEFINED DISORDER

REACTIONS (5)
  - BLOOD PRESSURE INCREASED [None]
  - DYSPNOEA [None]
  - LACRIMATION INCREASED [None]
  - PAIN IN EXTREMITY [None]
  - PAIN IN JAW [None]
